FAERS Safety Report 9903821 (Version 1)
Quarter: 2014Q1

REPORT INFORMATION
  Report Type: Spontaneous
  Country: US (occurrence: US)
  Receive Date: 20140218
  Receipt Date: 20140218
  Transmission Date: 20141002
  Serious: Yes (Hospitalization)
  Sender: FDA-Public Use
  Company Number: US-BIOGENIDEC-2014BI015276

PATIENT
  Age: 77 Year
  Sex: Female

DRUGS (11)
  1. AVONEX [Suspect]
     Indication: MULTIPLE SCLEROSIS
     Route: 030
     Dates: start: 20080124
  2. BROVANA [Concomitant]
  3. BUDESONIDE [Concomitant]
  4. COSOPT [Concomitant]
  5. FLUOCINOLONE ACETONIDE [Concomitant]
  6. MIRTAZAPINE [Concomitant]
  7. SERTRALINE HCL [Concomitant]
  8. SIMVASTATIN [Concomitant]
  9. TEMAZEPAM [Concomitant]
  10. TYLENOL [Concomitant]
  11. ZOLPIDEM TARTRATE [Concomitant]

REACTIONS (1)
  - Lower limb fracture [Unknown]
